FAERS Safety Report 23794201 (Version 1)
Quarter: 2024Q2

REPORT INFORMATION
  Report Type: Spontaneous
  Country: CN (occurrence: CN)
  Receive Date: 20240429
  Receipt Date: 20240429
  Transmission Date: 20240716
  Serious: Yes (Hospitalization)
  Sender: FDA-Public Use
  Company Number: CN-PFIZER INC-PV202400054689

PATIENT
  Age: 68 Year
  Sex: Male

DRUGS (2)
  1. ZYVOX [Suspect]
     Active Substance: LINEZOLID
     Indication: Anti-infective therapy
     Dosage: 600 MG, 2X/DAY
     Route: 048
     Dates: start: 20231213, end: 20240111
  2. ZYVOX [Suspect]
     Active Substance: LINEZOLID
     Dosage: 600 MG, 2X/DAY
     Route: 048
     Dates: start: 20240113, end: 20240206

REACTIONS (3)
  - Decreased appetite [Recovering/Resolving]
  - Asthenia [Recovering/Resolving]
  - Anaemia [Recovering/Resolving]

NARRATIVE: CASE EVENT DATE: 20240131
